FAERS Safety Report 10906620 (Version 1)
Quarter: 2015Q1

REPORT INFORMATION
  Report Type: Spontaneous
  Country: BR (occurrence: BR)
  Receive Date: 20150312
  Receipt Date: 20150312
  Transmission Date: 20150721
  Serious: Yes (Hospitalization, Other)
  Sender: FDA-Public Use
  Company Number: BR-009507513-1503BRA004425

PATIENT
  Age: 22 Year
  Sex: Female
  Weight: 50 kg

DRUGS (1)
  1. NUVARING [Suspect]
     Active Substance: ETHINYL ESTRADIOL\ETONOGESTREL
     Indication: CONTRACEPTION
     Dosage: THREE WEEKS INSITU WITH ONE WEEK RING-FREE PERIOD
     Route: 067
     Dates: start: 2006, end: 2006

REACTIONS (2)
  - Caesarean section [Recovered/Resolved]
  - Abnormal labour [Recovered/Resolved]

NARRATIVE: CASE EVENT DATE: 20130411
